FAERS Safety Report 8084867-4 (Version None)
Quarter: 2012Q1

REPORT INFORMATION
  Report Type: 
  Country: None (occurrence: None)
  Receive Date: 20120128
  Receipt Date: 20110318
  Transmission Date: 20120608
  Serious: No
  Sender: FDA-Public Use
  Company Number: US-ABBOTT-11P-163-0712831-00

PATIENT
  Age: 58 Year
  Sex: Female

DRUGS (8)
  1. SIMVASTATIN [Concomitant]
     Indication: BLOOD CHOLESTEROL INCREASED
     Route: 048
  2. VIVELLE-DOT [Concomitant]
     Indication: HORMONE REPLACEMENT THERAPY
  3. ASACOL [Concomitant]
     Indication: CROHN'S DISEASE
     Route: 048
  4. HUMIRA [Suspect]
     Indication: CROHN'S DISEASE
     Dates: start: 20110201
  5. HYDROCHLORITHIAZIDE [Concomitant]
     Indication: HYPERTENSION
     Route: 048
  6. VIVELLE-DOT [Concomitant]
     Indication: HYSTERECTOMY
  7. QUINAPRIL [Concomitant]
     Indication: HYPERTENSION
     Route: 048
  8. AZATHIOPRINE [Concomitant]
     Indication: IMMUNOSUPPRESSANT DRUG THERAPY
     Route: 048

REACTIONS (3)
  - HYPERHIDROSIS [None]
  - ARTHRALGIA [None]
  - FATIGUE [None]
